FAERS Safety Report 14588459 (Version 3)
Quarter: 2018Q2

REPORT INFORMATION
  Report Type: Spontaneous
  Country: US (occurrence: US)
  Receive Date: 20180301
  Receipt Date: 20180409
  Transmission Date: 20180711
  Serious: No
  Sender: FDA-Public Use
  Company Number: US-GLAXOSMITHKLINE-US2018GSK034938

PATIENT
  Age: 65 Year
  Sex: Female

DRUGS (9)
  1. METFORMIN [Concomitant]
     Active Substance: METFORMIN HYDROCHLORIDE
  2. THEOPHYLLINE [Concomitant]
     Active Substance: THEOPHYLLINE ANHYDROUS
  3. MONTELUKAST [Concomitant]
     Active Substance: MONTELUKAST SODIUM
  4. ALENDRONATE [Concomitant]
     Active Substance: ALENDRONATE SODIUM
  5. FISH OIL [Concomitant]
     Active Substance: FISH OIL
  6. HYDROCHLOROTHIAZIDE. [Concomitant]
     Active Substance: HYDROCHLOROTHIAZIDE
  7. NUCALA [Suspect]
     Active Substance: MEPOLIZUMAB
     Indication: PRODUCT USED FOR UNKNOWN INDICATION
     Dosage: UNK
     Dates: start: 20171227
  8. IRBESARTAN. [Concomitant]
     Active Substance: IRBESARTAN
  9. PREDNISONE. [Concomitant]
     Active Substance: PREDNISONE

REACTIONS (3)
  - Pruritus [Recovered/Resolved]
  - Pruritus generalised [Recovered/Resolved]
  - Sensory disturbance [Recovered/Resolved]

NARRATIVE: CASE EVENT DATE: 20180123
